FAERS Safety Report 26127449 (Version 1)
Quarter: 2025Q4

REPORT INFORMATION
  Report Type: Spontaneous
  Country: RU (occurrence: RU)
  Receive Date: 20251205
  Receipt Date: 20251205
  Transmission Date: 20260118
  Serious: Yes (Life-Threatening)
  Sender: NOVO NORDISK
  Company Number: None

PATIENT
  Sex: Female

DRUGS (1)
  1. LEVEMIR [Suspect]
     Active Substance: INSULIN DETEMIR
     Indication: Type 1 diabetes mellitus
     Dosage: UNK
     Route: 058

REACTIONS (1)
  - Bronchospasm [Recovered/Resolved]
